FAERS Safety Report 9858898 (Version 2)
Quarter: 2014Q1

REPORT INFORMATION
  Report Type: Report from Study
  Country: CA (occurrence: CA)
  Receive Date: 20140131
  Receipt Date: 20140207
  Transmission Date: 20141002
  Serious: Yes (Other)
  Sender: FDA-Public Use
  Company Number: CA-ABBVIE-14P-028-1195779-00

PATIENT
  Sex: Male
  Weight: 61.29 kg

DRUGS (2)
  1. KALETRA 200/50 [Suspect]
     Indication: ANTIRETROVIRAL THERAPY
     Dosage: 200 MG /50 MG
     Route: 048
     Dates: start: 2004
  2. MULTIPLE MEDICATIONS [Concomitant]
     Indication: PRODUCT USED FOR UNKNOWN INDICATION

REACTIONS (3)
  - Hip arthroplasty [Unknown]
  - Pain in extremity [Unknown]
  - Gastrointestinal disorder [Unknown]
